FAERS Safety Report 6858411-0 (Version None)
Quarter: 2010Q3

REPORT INFORMATION
  Report Type: 
  Country: None (occurrence: None)
  Receive Date: 20100719
  Receipt Date: 20080206
  Transmission Date: 20110219
  Serious: No
  Sender: FDA-Public Use
  Company Number: US-PFIZER INC-2008012824

PATIENT
  Sex: Female
  Weight: 62.7 kg

DRUGS (3)
  1. CHANTIX [Suspect]
     Indication: SMOKING CESSATION THERAPY
     Dates: start: 20080201
  2. FLUOXETINE HCL [Concomitant]
  3. IMITREX [Concomitant]
     Indication: MIGRAINE

REACTIONS (2)
  - FEELING ABNORMAL [None]
  - INCREASED APPETITE [None]
